FAERS Safety Report 6165045-2 (Version None)
Quarter: 2009Q2

REPORT INFORMATION
  Report Type: 
  Country: None (occurrence: None)
  Receive Date: 20090421
  Receipt Date: 20090421
  Transmission Date: 20091009
  Serious: Yes (Hospitalization)
  Sender: FDA-Public Use
  Company Number: None

PATIENT
  Age: 60 Year
  Sex: Male
  Weight: 68.7 kg

DRUGS (3)
  1. FLUOROURACIL [Suspect]
     Dosage: 600 MG/M2 IV X 5 DY
     Dates: start: 20090413, end: 20090418
  2. HYDREA 1000 MG [Suspect]
     Dosage: 500 MG PO BID
     Route: 048
     Dates: start: 20090413, end: 20090418
  3. CETUXIMAB 475 MG IV X 1 [Suspect]
     Route: 042
     Dates: start: 20090413, end: 20090418

REACTIONS (1)
  - BODY TEMPERATURE INCREASED [None]
